FAERS Safety Report 5838034-2 (Version None)
Quarter: 2008Q3

REPORT INFORMATION
  Report Type: 
  Country: None (occurrence: None)
  Receive Date: 20080808
  Receipt Date: 20080318
  Transmission Date: 20090109
  Serious: No
  Sender: FDA-Public Use
  Company Number: A0716206A

PATIENT
  Age: 30 Year
  Sex: Female

DRUGS (2)
  1. PAXIL [Suspect]
     Indication: DEPRESSION
     Dosage: 10MG PER DAY
     Route: 048
     Dates: start: 19990421, end: 20010915
  2. NO CONCURRENT MEDICATION [Concomitant]

REACTIONS (6)
  - FEELING ABNORMAL [None]
  - INFLUENZA LIKE ILLNESS [None]
  - LIBIDO DECREASED [None]
  - OBSESSIVE THOUGHTS [None]
  - TREMOR [None]
  - WITHDRAWAL SYNDROME [None]
